FAERS Safety Report 12753261 (Version 1)
Quarter: 2016Q3

REPORT INFORMATION
  Report Type: Spontaneous
  Country: US (occurrence: US)
  Receive Date: 20160916
  Receipt Date: 20160916
  Transmission Date: 20161109
  Serious: No
  Sender: FDA-Public Use
  Company Number: US-009507513-1608USA015295

PATIENT
  Age: 70 Year
  Sex: Female

DRUGS (2)
  1. MOMETASONE FUROATE. [Suspect]
     Active Substance: MOMETASONE FUROATE
     Indication: ALLERGIC SINUSITIS
     Dosage: UNK
     Route: 045
     Dates: start: 201607, end: 2016
  2. MOMETASONE FUROATE. [Suspect]
     Active Substance: MOMETASONE FUROATE
     Dosage: UNK
     Dates: start: 2016

REACTIONS (5)
  - Ear pruritus [Recovered/Resolved]
  - Nocturia [Recovered/Resolved]
  - Pruritus [Recovered/Resolved]
  - Dysphonia [Recovered/Resolved]
  - Poor quality sleep [Recovered/Resolved]

NARRATIVE: CASE EVENT DATE: 201607
